FAERS Safety Report 13339140 (Version 1)
Quarter: 2017Q1

REPORT INFORMATION
  Report Type: Spontaneous
  Country: US (occurrence: US)
  Receive Date: 20170315
  Receipt Date: 20170315
  Transmission Date: 20170428
  Serious: No
  Sender: FDA-Public Use
  Company Number: US-BEH-2017078865

PATIENT
  Age: 17 Year
  Sex: Female

DRUGS (1)
  1. STIMATE [Suspect]
     Active Substance: DESMOPRESSIN ACETATE
     Indication: VON WILLEBRAND^S DISEASE
     Dosage: 300 ?G, PRN
     Route: 045
     Dates: start: 20160606

REACTIONS (4)
  - Dizziness [Unknown]
  - Headache [Unknown]
  - Somnolence [Unknown]
  - Pyrexia [Unknown]

NARRATIVE: CASE EVENT DATE: 20170310
